FAERS Safety Report 13167123 (Version 2)
Quarter: 2017Q1

REPORT INFORMATION
  Report Type: Report from Study
  Country: DE (occurrence: DE)
  Receive Date: 20170131
  Receipt Date: 20170202
  Transmission Date: 20170428
  Serious: Yes (Other)
  Sender: FDA-Public Use
  Company Number: DE-BIOGEN-2017BI00348622

PATIENT
  Age: 41 Year
  Sex: Male
  Weight: 90 kg

DRUGS (3)
  1. TYSABRI [Suspect]
     Active Substance: NATALIZUMAB
     Indication: MULTIPLE SCLEROSIS
     Route: 042
     Dates: start: 20130729
  2. GABAPENTIN. [Concomitant]
     Active Substance: GABAPENTIN
     Indication: DYSAESTHESIA
     Dosage: 1 IN THE MORNING, 2 IN THE EVENTING
     Route: 048
     Dates: start: 2012
  3. FAMPYRA [Suspect]
     Active Substance: DALFAMPRIDINE
     Indication: MUSCULAR WEAKNESS
     Route: 048
     Dates: start: 2012

REACTIONS (1)
  - Cytology abnormal [Unknown]

NARRATIVE: CASE EVENT DATE: 20160301
